FAERS Safety Report 12500030 (Version 1)
Quarter: 2016Q2

REPORT INFORMATION
  Report Type: Spontaneous
  Country: US (occurrence: None)
  Receive Date: 20160624
  Receipt Date: 20160624
  Transmission Date: 20160815
  Serious: Yes (Hospitalization)
  Sender: FDA-Public Use
  Company Number: None

PATIENT
  Age: 65 Year
  Sex: Female
  Weight: 72.39 kg

DRUGS (2)
  1. CARBOPLATIN. [Suspect]
     Active Substance: CARBOPLATIN
     Dates: end: 20160120
  2. TAXOL [Suspect]
     Active Substance: PACLITAXEL
     Dates: end: 20160120

REACTIONS (4)
  - Dyspnoea [None]
  - Condition aggravated [None]
  - Respiratory disorder [None]
  - Cough [None]

NARRATIVE: CASE EVENT DATE: 20160617
